FAERS Safety Report 19657005 (Version 1)
Quarter: 2021Q3

REPORT INFORMATION
  Report Type: Spontaneous
  Country: US (occurrence: US)
  Receive Date: 20210803
  Receipt Date: 20210803
  Transmission Date: 20211014
  Serious: Yes (Hospitalization)
  Sender: FDA-Public Use
  Company Number: None

PATIENT
  Sex: Female

DRUGS (2)
  1. VIGABATRIN 500MG POWDER PACKETS 50/CT: [Suspect]
     Active Substance: VIGABATRIN
  2. VIGABATRIN 500MG POWDER PACKETS 50/CT: [Suspect]
     Active Substance: VIGABATRIN
     Indication: INFANTILE SPASMS
     Route: 048
     Dates: start: 20210707

REACTIONS (6)
  - Viral infection [None]
  - Postictal state [None]
  - Disease progression [None]
  - Tachycardia [None]
  - Bronchiolitis [None]
  - Hypotonia [None]

NARRATIVE: CASE EVENT DATE: 20210711
